FAERS Safety Report 21569367 (Version 1)
Quarter: 2022Q4

REPORT INFORMATION
  Report Type: Other
  Country: None (occurrence: IR)
  Receive Date: 20221109
  Receipt Date: 20221109
  Transmission Date: 20230113
  Serious: Yes (Death)
  Sender: FDA-Public Use
  Company Number: IR-OrBion Pharmaceuticals Private Limited-2134669

PATIENT
  Age: 20 Year
  Sex: Male

DRUGS (1)
  1. SUMATRIPTAN [Suspect]
     Active Substance: SUMATRIPTAN
     Route: 065
     Dates: start: 202202, end: 202202

REACTIONS (26)
  - Troponin increased [Unknown]
  - Cardio-respiratory arrest [Fatal]
  - Hypernatraemia [Unknown]
  - Blood creatinine increased [Unknown]
  - Aspartate aminotransferase increased [Unknown]
  - Alanine aminotransferase increased [Unknown]
  - Blood alkaline phosphatase increased [Unknown]
  - Blood sodium increased [Unknown]
  - Blood creatine phosphokinase increased [Unknown]
  - Blood lactate dehydrogenase increased [Unknown]
  - Fibrin D dimer increased [Unknown]
  - Loss of consciousness [Unknown]
  - Tachycardia [Unknown]
  - Hypertension [Unknown]
  - Anal incontinence [Unknown]
  - Urinary incontinence [Unknown]
  - Hallucination [Unknown]
  - Agitation [Unknown]
  - Hyperhidrosis [Unknown]
  - Haematuria [Unknown]
  - Proteinuria [Unknown]
  - Pneumonia [Fatal]
  - Brain oedema [Fatal]
  - Hypoxia [Fatal]
  - Poisoning [Fatal]
  - Completed suicide [Fatal]

NARRATIVE: CASE EVENT DATE: 20220201
